FAERS Safety Report 13188021 (Version 3)
Quarter: 2017Q1

REPORT INFORMATION
  Report Type: Report from Study
  Country: CN (occurrence: CN)
  Receive Date: 20170206
  Receipt Date: 20170222
  Transmission Date: 20170428
  Serious: Yes (Death, Hospitalization)
  Sender: FDA-Public Use
  Company Number: CN-ROCHE-1884835

PATIENT
  Sex: Female
  Weight: 50 kg

DRUGS (1)
  1. AVASTIN [Suspect]
     Active Substance: BEVACIZUMAB
     Indication: COLON CANCER
     Route: 041
     Dates: start: 20160222, end: 20161215

REACTIONS (5)
  - Pyrexia [Unknown]
  - Ascites [Unknown]
  - General physical health deterioration [Unknown]
  - Abdominal distension [Unknown]
  - Death [Fatal]
